FAERS Safety Report 8992412 (Version 1)
Quarter: 2012Q4

REPORT INFORMATION
  Report Type: 
  Country: US (occurrence: US)
  Receive Date: 20121231
  Receipt Date: 20121231
  Transmission Date: 20130627
  Serious: Yes (Death)
  Sender: FDA-Public Use
  Company Number: US-B.I. PHARMACEUTICALS,INC./RIDGEFIELD-2012-BI-04514BP

PATIENT
  Age: 58 None
  Sex: Male

DRUGS (7)
  1. SPIRIVA [Suspect]
     Indication: BRONCHITIS CHRONIC
     Dosage: 18 mcg
     Route: 055
     Dates: start: 20120613
  2. DIOVAN [Concomitant]
     Indication: HYPERTENSION
     Route: 048
  3. PLETAL [Concomitant]
     Route: 048
  4. ADVAIR [Concomitant]
     Route: 055
  5. PROVENTIL [Concomitant]
     Route: 055
  6. ASPIRIN [Concomitant]
     Route: 048
  7. CHOLESTEROL LOWERING AGENT [Concomitant]
     Indication: BLOOD CHOLESTEROL INCREASED
     Route: 048

REACTIONS (7)
  - Cardiac arrest [Fatal]
  - Dyspnoea [Unknown]
  - Cold sweat [Unknown]
  - Hyperhidrosis [Unknown]
  - Fatigue [Unknown]
  - Nausea [Unknown]
  - Poor quality sleep [Unknown]
